FAERS Safety Report 13585032 (Version 1)
Quarter: 2017Q2

REPORT INFORMATION
  Report Type: Spontaneous
  Country: IT (occurrence: IT)
  Receive Date: 20170526
  Receipt Date: 20170526
  Transmission Date: 20170830
  Serious: Yes (Hospitalization)
  Sender: FDA-Public Use
  Company Number: IT-BAYER-2017-093759

PATIENT
  Age: 70 Year
  Sex: Male

DRUGS (1)
  1. LASONIL ANTINFIAMMATORIO E ANTIREUMATICO 220 MG [Suspect]
     Active Substance: NAPROXEN SODIUM
     Dosage: DAILY DOSE 660 MG
     Dates: start: 20170410, end: 20170425

REACTIONS (3)
  - Gastritis erosive [Recovered/Resolved]
  - Anaemia [Recovered/Resolved]
  - Melaena [Recovered/Resolved]

NARRATIVE: CASE EVENT DATE: 20170425
